FAERS Safety Report 6934631-1 (Version None)
Quarter: 2010Q3

REPORT INFORMATION
  Report Type: 
  Country: None (occurrence: None)
  Receive Date: 20100820
  Receipt Date: 20100810
  Transmission Date: 20110219
  Serious: Yes (Other)
  Sender: FDA-Public Use
  Company Number: CA-ABBOTT-10P-028-0662037-00

PATIENT
  Sex: Male
  Weight: 63.56 kg

DRUGS (18)
  1. HUMIRA [Suspect]
     Indication: RHEUMATOID ARTHRITIS
     Route: 058
     Dates: start: 20050929, end: 20100604
  2. AMOXICILLIN [Concomitant]
     Indication: SINUSITIS
     Route: 048
     Dates: start: 20100623
  3. ANTIBIOTIC [Concomitant]
     Indication: SINUSITIS
     Dates: start: 20100705, end: 20100712
  4. NASONEX [Concomitant]
     Indication: SINUSITIS
     Dosage: TWICE DAILY AS NEEDED
     Route: 045
  5. FLOVENT [Concomitant]
     Indication: SINUSITIS
     Dosage: AS NEEDED
     Route: 055
  6. SYNTHROID [Concomitant]
     Indication: HYPOTHYROIDISM
     Dosage: 0.15MG DAILY 6/7 DAYS
     Route: 048
  7. METHOTREXATE [Concomitant]
     Indication: PRODUCT USED FOR UNKNOWN INDICATION
     Dosage: 2.5MG 3 TABS/WEEK
     Route: 048
  8. LEUCOVORIN CALCIUM [Concomitant]
     Indication: PRODUCT USED FOR UNKNOWN INDICATION
     Dosage: 5MG EVERY WEEK
     Route: 048
  9. PLAQUENIL [Concomitant]
     Indication: PRODUCT USED FOR UNKNOWN INDICATION
     Dosage: DAILY ON EVEN DAYS
     Route: 048
  10. PLAQUENIL [Concomitant]
     Dosage: DAILY ON ODD DAYS
     Route: 048
  11. PREDNISONE [Concomitant]
     Indication: PRODUCT USED FOR UNKNOWN INDICATION
     Route: 048
  12. APO-BISOPROLOL [Concomitant]
     Indication: CARDIAC DISORDER
     Route: 048
  13. ASAPHEN [Concomitant]
     Indication: CARDIAC DISORDER
     Route: 048
  14. CRESTOR [Concomitant]
     Indication: BLOOD CHOLESTEROL
     Route: 048
  15. PREVACID [Concomitant]
     Indication: GASTRIC DISORDER
     Route: 048
  16. FOSAMAX [Concomitant]
     Indication: PRODUCT USED FOR UNKNOWN INDICATION
     Dosage: EVERY WEEK
     Route: 048
  17. VITAMIN D [Concomitant]
     Indication: PRODUCT USED FOR UNKNOWN INDICATION
     Dosage: EVERY WEEK
     Route: 048
  18. CALCIUM [Concomitant]
     Indication: PRODUCT USED FOR UNKNOWN INDICATION
     Route: 048

REACTIONS (5)
  - ARTERIAL OCCLUSIVE DISEASE [None]
  - ARTHRITIS [None]
  - BLOOD CHOLESTEROL INCREASED [None]
  - CHEST PAIN [None]
  - CORONARY ARTERY OCCLUSION [None]
